FAERS Safety Report 5572145-4 (Version None)
Quarter: 2007Q4

REPORT INFORMATION
  Report Type: 
  Country: None (occurrence: None)
  Receive Date: 20071221
  Receipt Date: 20071212
  Transmission Date: 20080405
  Serious: Yes (Hospitalization)
  Sender: FDA-Public Use
  Company Number: RO-PFIZER INC-2007099716

PATIENT
  Sex: Female
  Weight: 77 kg

DRUGS (10)
  1. SORTIS [Suspect]
     Indication: CARDIOVASCULAR EVENT PROPHYLAXIS
     Route: 048
     Dates: start: 20071016, end: 20071114
  2. SORTIS [Suspect]
     Indication: DYSLIPIDAEMIA
  3. SORTIS [Suspect]
     Indication: HYPERTENSION
  4. INDAPAMIDE [Concomitant]
     Route: 048
  5. AMLODIPINE [Concomitant]
     Route: 048
  6. PERINDOPRIL [Concomitant]
     Route: 048
  7. DIOSMIN [Concomitant]
     Route: 048
  8. ACETYLSALICYLIC ACID SRT [Concomitant]
     Route: 048
  9. AUGMENTIN '250' [Concomitant]
     Route: 048
  10. BISOPROLOL [Concomitant]
     Route: 048

REACTIONS (5)
  - BLOOD CREATINE PHOSPHOKINASE INCREASED [None]
  - BLOOD CREATINE PHOSPHOKINASE MB INCREASED [None]
  - MYALGIA [None]
  - RHABDOMYOLYSIS [None]
  - TRANSAMINASES INCREASED [None]
